FAERS Safety Report 9776365 (Version 2)
Quarter: 2014Q1

REPORT INFORMATION
  Report Type: Report from Study
  Country: JP (occurrence: JP)
  Receive Date: 20131220
  Receipt Date: 20140106
  Transmission Date: 20141002
  Serious: Yes (Hospitalization)
  Sender: FDA-Public Use
  Company Number: JP-PFIZER INC-2013356194

PATIENT
  Age: 72 Year
  Sex: Female
  Weight: 54.5 kg

DRUGS (6)
  1. TOFACITINIB CITRATE [Suspect]
     Indication: PSORIASIS
     Dosage: 10 MG, 2X/DAY (MORNING AND EVENING)
     Route: 048
     Dates: start: 20130221
  2. CRESTOR [Concomitant]
     Indication: HYPERLIPIDAEMIA
     Dosage: 7.5 MG, 1X/DAY AFTER DINNER
     Route: 048
     Dates: start: 20130912
  3. ROHYPNOL [Concomitant]
     Indication: INSOMNIA
     Dosage: 2 MG, AS NEEDED
     Route: 048
  4. MAGMITT [Concomitant]
     Indication: CONSTIPATION
     Dosage: 990 MG, 3X/DAY AFTER EACH MEAL
     Route: 048
     Dates: start: 20120419
  5. NEXIUM [Concomitant]
     Indication: GASTROOESOPHAGEAL REFLUX DISEASE
     Dosage: 10 MG, 1X/DAY
     Route: 048
     Dates: start: 20130820
  6. LOXONIN [Concomitant]
     Indication: INTERVERTEBRAL DISC PROTRUSION
     Dosage: 1 SHEET AS NEEDED
     Route: 062
     Dates: start: 20130319

REACTIONS (1)
  - Syncope [Recovered/Resolved]
